FAERS Safety Report 4683232-7 (Version None)
Quarter: 2005Q2

REPORT INFORMATION
  Report Type: 
  Country: None (occurrence: None)
  Receive Date: 20050602
  Receipt Date: 20050301
  Transmission Date: 20051028
  Serious: No
  Sender: FDA-Public Use
  Company Number: USA050289920

PATIENT
  Sex: Female
  Weight: 68 kg

DRUGS (3)
  1. CYMBALTA [Suspect]
     Indication: DEPRESSION
     Dosage: 60 MG
  2. AMBIEN [Concomitant]
  3. SOMA [Concomitant]

REACTIONS (3)
  - AMNESIA [None]
  - JOINT INJURY [None]
  - SLEEP DISORDER [None]
